FAERS Safety Report 20775364 (Version 5)
Quarter: 2023Q2

REPORT INFORMATION
  Report Type: Report from Study
  Country: US (occurrence: US)
  Receive Date: 20220502
  Receipt Date: 20230630
  Transmission Date: 20230721
  Serious: Yes (Other)
  Sender: FDA-Public Use
  Company Number: US-NOVARTISPH-NVSC2022US096664

PATIENT
  Sex: Female

DRUGS (1)
  1. KISQALI [Suspect]
     Active Substance: RIBOCICLIB
     Indication: Product used for unknown indication
     Dosage: UNK
     Route: 065

REACTIONS (8)
  - Skin cancer [Unknown]
  - Second primary malignancy [Unknown]
  - Breast cancer recurrent [Unknown]
  - Diarrhoea [Unknown]
  - Blood glucose decreased [Unknown]
  - Fatigue [Unknown]
  - Product availability issue [Unknown]
  - Product dose omission in error [Unknown]
